FAERS Safety Report 13065803 (Version 3)
Quarter: 2017Q1

REPORT INFORMATION
  Report Type: Spontaneous
  Country: JP (occurrence: JP)
  Receive Date: 20161227
  Receipt Date: 20170106
  Transmission Date: 20170428
  Serious: Yes (Hospitalization)
  Sender: FDA-Public Use
  Company Number: JP-PFIZER INC-2016566703

PATIENT
  Age: 81 Year
  Sex: Female
  Weight: 54 kg

DRUGS (5)
  1. EVAMYL [Concomitant]
     Active Substance: LORMETAZEPAM
     Indication: DEPRESSION
     Dosage: 1 MG, 1X/DAY
     Route: 048
  2. CELECOX [Suspect]
     Active Substance: CELECOXIB
     Indication: RIB FRACTURE
     Dosage: 100 MG, 2X/DAY
     Route: 048
     Dates: start: 20161102, end: 20161114
  3. REFLEX /00021218/ [Concomitant]
     Active Substance: PICOLAMINE SALICYLATE
     Indication: DEPRESSION
     Dosage: 30 MG, 1X/DAY
     Route: 048
  4. LENDORMIN [Concomitant]
     Active Substance: BROTIZOLAM
     Indication: DEPRESSION
     Dosage: 0.5 MG, ONCE DAILY
     Route: 048
  5. IRSOGLADINE MALEATE [Concomitant]
     Active Substance: IRSOGLADINE MALEATE
     Indication: RIB FRACTURE
     Dosage: 2 MG, 2X/DAY
     Route: 048
     Dates: start: 20161108, end: 20161114

REACTIONS (2)
  - Generalised erythema [Recovering/Resolving]
  - Drug eruption [Recovering/Resolving]

NARRATIVE: CASE EVENT DATE: 20161112
